FAERS Safety Report 8951339 (Version 1)
Quarter: 2012Q4

REPORT INFORMATION
  Report Type: 
  Country: US (occurrence: US)
  Receive Date: 20121207
  Receipt Date: 20121207
  Transmission Date: 20130627
  Serious: No
  Sender: FDA-Public Use
  Company Number: US-009507513-1212USA001260

PATIENT
  Age: 16 Year
  Sex: Male

DRUGS (1)
  1. NOXAFIL [Suspect]
     Indication: ASPERGILLOSIS
     Dosage: 200 mg, qid
     Route: 048
     Dates: start: 20121120

REACTIONS (1)
  - Drug level below therapeutic [Not Recovered/Not Resolved]
